FAERS Safety Report 4918810-0 (Version None)
Quarter: 2006Q1

REPORT INFORMATION
  Report Type: 
  Country: None (occurrence: None)
  Receive Date: 20060221
  Receipt Date: 20060221
  Transmission Date: 20060701
  Serious: Yes (Death, Other)
  Sender: FDA-Public Use
  Company Number: None

PATIENT
  Age: 81 Year
  Sex: Female
  Weight: 49.8957 kg

DRUGS (1)
  1. AMIODARONE [Suspect]
     Indication: ATRIAL FIBRILLATION
     Dosage: 400 MG  TWICE DAILY  PO  (LOADING DOSES STOPPED)
     Route: 048
     Dates: start: 20041009, end: 20041011

REACTIONS (6)
  - ATRIAL FIBRILLATION [None]
  - HYPERTHYROIDISM [None]
  - IDIOSYNCRATIC DRUG REACTION [None]
  - LIVER DISORDER [None]
  - LUNG DISORDER [None]
  - NERVOUS SYSTEM DISORDER [None]
